FAERS Safety Report 4913829-8 (Version None)
Quarter: 2006Q1

REPORT INFORMATION
  Report Type: 
  Country: None (occurrence: None)
  Receive Date: 20060113
  Receipt Date: 20051114
  Transmission Date: 20060701
  Serious: No
  Sender: FDA-Public Use
  Company Number: 2005SP003987

PATIENT
  Age: 63 Year
  Sex: Male

DRUGS (6)
  1. LUNESTA [Suspect]
     Dosage: 2 MG; HS; ORAL
     Route: 048
     Dates: start: 20050601
  2. PIOGLITAZONE HCL [Concomitant]
  3. CELEBREX [Concomitant]
  4. LISINOPRIL [Concomitant]
  5. AMITRIPTYLINE [Concomitant]
  6. ATORVASTATIN CALCIUM [Concomitant]

REACTIONS (2)
  - ARTHRALGIA [None]
  - MYALGIA [None]
